FAERS Safety Report 14744698 (Version 2)
Quarter: 2018Q4

REPORT INFORMATION
  Report Type: Spontaneous
  Country: FR (occurrence: FR)
  Receive Date: 20180411
  Receipt Date: 20181104
  Transmission Date: 20190204
  Serious: Yes (Other)
  Sender: FDA-Public Use
  Company Number: FR-SUN PHARMACEUTICAL INDUSTRIES LTD-2018R1-164751

PATIENT
  Age: 43 Year
  Sex: Female

DRUGS (5)
  1. PREDNISONE. [Suspect]
     Active Substance: PREDNISONE
     Indication: SKELETAL DYSPLASIA
     Dosage: 30 MG, DAILY
     Route: 065
  2. TRAMADOL. [Suspect]
     Active Substance: TRAMADOL
     Indication: SKELETAL DYSPLASIA
     Dosage: 300 MG, DAILY
     Route: 065
  3. LOSARTAN. [Suspect]
     Active Substance: LOSARTAN
     Indication: SKELETAL DYSPLASIA
     Dosage: UNK
     Route: 065
  4. ZOLEDRONIC ACID [Suspect]
     Active Substance: ZOLEDRONIC ACID
     Indication: SKELETAL DYSPLASIA
     Dosage: 5 MG, UNK
     Route: 065
  5. ACETAMINOPHEN. [Suspect]
     Active Substance: ACETAMINOPHEN
     Indication: SKELETAL DYSPLASIA
     Dosage: 4 G, DAILY
     Route: 065

REACTIONS (2)
  - Condition aggravated [Unknown]
  - Treatment failure [Unknown]
